FAERS Safety Report 7001875-2 (Version None)
Quarter: 2010Q3

REPORT INFORMATION
  Report Type: 
  Country: None (occurrence: None)
  Receive Date: 20100920
  Receipt Date: 20100914
  Transmission Date: 20110219
  Serious: Yes (Death)
  Sender: FDA-Public Use
  Company Number: US-MERCK-1009USA02715

PATIENT
  Age: 63 Year
  Sex: Female

DRUGS (3)
  1. HYZAAR [Suspect]
     Route: 048
  2. JANUVIA [Suspect]
     Route: 048
  3. SINGULAIR [Suspect]
     Route: 048

REACTIONS (1)
  - DEATH [None]
